FAERS Safety Report 13899265 (Version 2)
Quarter: 2017Q4

REPORT INFORMATION
  Report Type: Spontaneous
  Country: AR (occurrence: AR)
  Receive Date: 20170824
  Receipt Date: 20171016
  Transmission Date: 20180320
  Serious: Yes (Other)
  Sender: FDA-Public Use
  Company Number: AR-PFIZER INC-2017366737

PATIENT
  Age: 89 Year
  Sex: Female

DRUGS (1)
  1. IBRANCE [Suspect]
     Active Substance: PALBOCICLIB
     Indication: BREAST CANCER METASTATIC
     Dosage: 100 MG, DAILY
     Dates: start: 20160725

REACTIONS (7)
  - Gait inability [Unknown]
  - Disorientation [Unknown]
  - Malaise [Unknown]
  - Dehydration [Unknown]
  - Weight decreased [Unknown]
  - Fatigue [Unknown]
  - Chest pain [Unknown]
